FAERS Safety Report 7585861-X (Version None)
Quarter: 2011Q2

REPORT INFORMATION
  Report Type: 
  Country: None (occurrence: None)
  Receive Date: 20110624
  Receipt Date: 20110619
  Transmission Date: 20111010
  Serious: Yes (Other)
  Sender: FDA-Public Use
  Company Number: A0932126A

PATIENT
  Age: 32 Year
  Sex: Female

DRUGS (1)
  1. ASPIRIN + CAFFEINE + PARACETAMOL (FORMULATION UNKNOWN) (ACETAMINOPHEN [Suspect]

REACTIONS (3)
  - DRUG DEPENDENCE [None]
  - OVERDOSE [None]
  - SENSORY DISTURBANCE [None]
